FAERS Safety Report 9351294 (Version 1)
Quarter: 2013Q2

REPORT INFORMATION
  Report Type: Spontaneous
  Country: FR (occurrence: FR)
  Receive Date: 20130617
  Receipt Date: 20130617
  Transmission Date: 20140414
  Serious: Yes (Other)
  Sender: FDA-Public Use
  Company Number: PHHY2013FR060362

PATIENT
  Sex: Male

DRUGS (4)
  1. ATORVASTATIN [Suspect]
  2. LISINOPRIL+HYDROCHLOROTHIAZIDE [Suspect]
  3. ROFECOXIB [Suspect]
  4. GINKGO [Suspect]

REACTIONS (1)
  - Acquired haemophilia [Unknown]
